FAERS Safety Report 22610953 (Version 1)
Quarter: 2023Q2

REPORT INFORMATION
  Report Type: Spontaneous
  Country: CN (occurrence: CN)
  Receive Date: 20230616
  Receipt Date: 20230616
  Transmission Date: 20230722
  Serious: Yes (Death)
  Sender: FDA-Public Use
  Company Number: CN-SUN PHARMACEUTICAL INDUSTRIES LTD-2023R1-394756

PATIENT
  Age: 9 Year
  Sex: Female
  Weight: 29.5 kg

DRUGS (7)
  1. EPINEPHRINE [Suspect]
     Active Substance: EPINEPHRINE
     Indication: Thyrotoxic crisis
     Dosage: 0.1 ML/KG 11 TIMES
     Route: 042
  2. NOREPINEPHRINE [Suspect]
     Active Substance: NOREPINEPHRINE
     Indication: Thyrotoxic crisis
     Dosage: 0.1 MICROGRAM/KILOGRAM/MIN
     Route: 065
  3. PROPYLTHIOURACIL [Suspect]
     Active Substance: PROPYLTHIOURACIL
     Indication: Thyrotoxic crisis
     Dosage: 50 MILLIGRAM Q8 H
     Route: 048
  4. DOBUTAMINE [Suspect]
     Active Substance: DOBUTAMINE HYDROCHLORIDE
     Indication: Thyrotoxic crisis
     Dosage: 5 MICROGRAM/KILOGRAM/MIN
     Route: 065
  5. DOPAMINE [Suspect]
     Active Substance: DOPAMINE HYDROCHLORIDE
     Indication: Thyrotoxic crisis
     Dosage: 5 MICROGRAM/KILOGRAM/MIN
     Route: 065
  6. HYDROCORTISONE [Suspect]
     Active Substance: HYDROCORTISONE
     Indication: Thyrotoxic crisis
     Dosage: 50 MILLIGRAM Q8 H
     Route: 065
  7. PROPRANOLOL [Suspect]
     Active Substance: PROPRANOLOL HYDROCHLORIDE
     Indication: Thyrotoxic crisis
     Dosage: 7.5 MILLIGRAM Q8 H
     Route: 048

REACTIONS (1)
  - Drug ineffective [Fatal]
